FAERS Safety Report 8928770 (Version 1)
Quarter: 2012Q4

REPORT INFORMATION
  Report Type: 
  Country: FR (occurrence: FR)
  Receive Date: 20121128
  Receipt Date: 20121128
  Transmission Date: 20130627
  Serious: Yes (Hospitalization)
  Sender: FDA-Public Use
  Company Number: FR-ASTELLAS-2012EU010363

PATIENT
  Age: 46 Year
  Sex: Male

DRUGS (11)
  1. PROGRAF [Suspect]
     Indication: ORGAN TRANSPLANT
     Dosage: 1 DF, bid
     Route: 048
     Dates: start: 2010, end: 20120822
  2. PROGRAF [Interacting]
     Dosage: 0.5 mg, Other
     Dates: start: 20120829
  3. VICTRELIS [Interacting]
     Indication: HEPATITIS VIRAL
     Dosage: 3200 mg, Unknown/D
     Route: 048
     Dates: start: 20120821, end: 20120821
  4. VICTRELIS [Interacting]
     Dosage: 800 mg, tid
     Dates: start: 20120829
  5. KARDEGIC [Concomitant]
     Dosage: 1 DF, UID/QD
     Route: 048
  6. CARDENSIEL [Concomitant]
     Dosage: 1 DF, UID/QD
     Route: 048
  7. COVERSYL                           /00790702/ [Concomitant]
     Dosage: 1.5 mg, UID/QD
     Route: 048
  8. INEXIUM /01479302/ [Concomitant]
     Dosage: 40 mg, UID/QD
     Route: 048
  9. PEGASYS 135 MICROGRAM [Concomitant]
     Indication: HEPATITIS VIRAL
     Dosage: 0.142 ug, UID/QD
     Route: 058
     Dates: start: 2010
  10. REBETOL [Concomitant]
     Indication: HEPATITIS VIRAL
     Dosage: 1 DF, tid
     Route: 048
     Dates: start: 2010
  11. INSULIN [Concomitant]
     Indication: TYPE 1 DIABETES MELLITUS
     Dosage: UNK
     Route: 058

REACTIONS (3)
  - Drug interaction [Recovered/Resolved]
  - Accidental overdose [Recovered/Resolved]
  - Renal impairment [Recovered/Resolved]
